FAERS Safety Report 5075861-6 (Version None)
Quarter: 2006Q3

REPORT INFORMATION
  Report Type: 
  Country: None (occurrence: None)
  Receive Date: 20060807
  Receipt Date: 20060807
  Transmission Date: 20061208
  Serious: No
  Sender: FDA-Public Use
  Company Number: None

PATIENT
  Sex: Female

DRUGS (2)
  1. THYROID TAB [Suspect]
     Indication: HYPOTHYROIDISM
     Dosage: 60MG  QD  PO
     Route: 048
     Dates: start: 20000726, end: 20060803
  2. THYROID TAB [Suspect]
     Indication: HYPOTHYROIDISM
     Dosage: 60MG  QD  PO
     Route: 048
     Dates: start: 20060801, end: 20060803

REACTIONS (3)
  - FEELING ABNORMAL [None]
  - PHARMACEUTICAL PRODUCT COMPLAINT [None]
  - PSYCHOMOTOR HYPERACTIVITY [None]
